FAERS Safety Report 25193908 (Version 3)
Quarter: 2025Q3

REPORT INFORMATION
  Report Type: Report from Study
  Country: RU (occurrence: RU)
  Receive Date: 20250414
  Receipt Date: 20250910
  Transmission Date: 20251021
  Serious: Yes (Death)
  Sender: SANOFI AVENTIS
  Company Number: RU-SA-2025SA106092

PATIENT

DRUGS (1)
  1. BELUMOSUDIL MESYLATE [Suspect]
     Active Substance: BELUMOSUDIL MESYLATE
     Indication: Chronic graft versus host disease
     Dosage: UNK UNK, QD, 100-200 MG/DAY, BASED ON BODY MASS
     Route: 048

REACTIONS (2)
  - Infection [Fatal]
  - Off label use [Fatal]
